FAERS Safety Report 7911273-2 (Version None)
Quarter: 2011Q4

REPORT INFORMATION
  Report Type: 
  Country: None (occurrence: None)
  Receive Date: 20111109
  Receipt Date: 20111103
  Transmission Date: 20120403
  Serious: Yes (Other)
  Sender: FDA-Public Use
  Company Number: A0951858A

PATIENT
  Sex: Female

DRUGS (2)
  1. ASPIRIN [Suspect]
     Dosage: 325 MG/ORAL
     Route: 048
  2. CLOPIDROGREL BISULFATE [Suspect]
     Dosage: ORAL
     Route: 048

REACTIONS (1)
  - HAEMORRHAGE [None]
